FAERS Safety Report 7509229-7 (Version None)
Quarter: 2011Q2

REPORT INFORMATION
  Report Type: 
  Country: None (occurrence: None)
  Receive Date: 20110527
  Receipt Date: 20110518
  Transmission Date: 20111010
  Serious: Yes (Hospitalization, Other)
  Sender: FDA-Public Use
  Company Number: US-ROCHE-458438

PATIENT
  Sex: Female
  Weight: 51.3 kg

DRUGS (5)
  1. ORTHO TRI-CYCLEN [Concomitant]
     Dates: start: 20000412
  2. ACCUTANE [Suspect]
     Route: 048
     Dates: start: 20000323, end: 20000515
  3. BENZAMYCIN TOPICAL GEL [Concomitant]
     Route: 061
     Dates: start: 19991212
  4. ALBUTEROL SULFATE AUTOHALER [Concomitant]
     Dates: start: 19981222
  5. DOXICYCLIN [Concomitant]
     Dosage: REPORTED AS DOXYCYCLINE.
     Dates: start: 19990129

REACTIONS (13)
  - CROHN'S DISEASE [None]
  - SLEEP APNOEA SYNDROME [None]
  - INFLAMMATORY BOWEL DISEASE [None]
  - SUICIDAL IDEATION [None]
  - ARRHYTHMIA [None]
  - PRURITUS [None]
  - MOOD SWINGS [None]
  - COLITIS [None]
  - SMALL INTESTINAL OBSTRUCTION [None]
  - DEPRESSION [None]
  - GASTROOESOPHAGEAL REFLUX DISEASE [None]
  - ANXIETY [None]
  - COLITIS ULCERATIVE [None]
